FAERS Safety Report 4481227-X (Version None)
Quarter: 2004Q4

REPORT INFORMATION
  Report Type: 
  Country: None (occurrence: None)
  Receive Date: 20040923
  Receipt Date: 20040804
  Transmission Date: 20050328
  Serious: No
  Sender: FDA-Public Use
  Company Number: USA040157523

PATIENT
  Age: 80 Year
  Sex: Female

DRUGS (12)
  1. FORTEO [Suspect]
     Indication: OSTEOPOROSIS
     Dates: start: 20040701
  2. EVISTA [Suspect]
     Indication: OSTEOPOROSIS
     Dosage: 60 MG DAY
     Dates: start: 20031101, end: 20040101
  3. DIOVAN [Concomitant]
  4. ZOCOR [Concomitant]
  5. PENTA-TRIAMTERENE HCTZ [Concomitant]
  6. NORVASC [Concomitant]
  7. PREVACID [Concomitant]
  8. ASPIRIN [Concomitant]
  9. CALCIUM [Concomitant]
  10. CITRACAL (CALCIUM CITRATE) [Concomitant]
  11. NIACIN [Concomitant]
  12. VITAMIN D [Concomitant]

REACTIONS (8)
  - BLOOD CALCIUM DECREASED [None]
  - BLOOD PRESSURE INCREASED [None]
  - DIZZINESS [None]
  - DRUG HYPERSENSITIVITY [None]
  - DRUG INEFFECTIVE [None]
  - INJECTION SITE HAEMORRHAGE [None]
  - MUSCLE CRAMP [None]
  - OEDEMA PERIPHERAL [None]
